FAERS Safety Report 18549394 (Version 2)
Quarter: 2020Q4

REPORT INFORMATION
  Report Type: Spontaneous
  Country: DE (occurrence: DE)
  Receive Date: 20201126
  Receipt Date: 20201205
  Transmission Date: 20210114
  Serious: Yes (Hospitalization)
  Sender: FDA-Public Use
  Company Number: DE-AUROBINDO-AUR-APL-2020-058064

PATIENT
  Sex: Female
  Weight: 85 kg

DRUGS (2)
  1. AMOXI-CLAVULAN AUROBINDO FILMTABLETTEN 875/125MG [Suspect]
     Active Substance: AMOXICILLIN\CLAVULANIC ACID
     Indication: TOOTH INFECTION
     Dosage: UNK, TWO TIMES A DAY
     Route: 048
     Dates: start: 20201116
  2. AMOXI-CLAVULAN AUROBINDO FILMTABLETTEN 875/125MG [Suspect]
     Active Substance: AMOXICILLIN\CLAVULANIC ACID
     Indication: TOOTH EXTRACTION
     Dosage: UNK, TWO TIMES A DAY
     Route: 048
     Dates: start: 20201109, end: 20201115

REACTIONS (3)
  - Drug ineffective [Unknown]
  - Tooth infection [Unknown]
  - Condition aggravated [Unknown]

NARRATIVE: CASE EVENT DATE: 20201115
